FAERS Safety Report 12453293 (Version 1)
Quarter: 2016Q2

REPORT INFORMATION
  Report Type: Spontaneous
  Country: US (occurrence: US)
  Receive Date: 20160609
  Receipt Date: 20160609
  Transmission Date: 20160815
  Serious: Yes (Hospitalization)
  Sender: FDA-Public Use
  Company Number: US-MYLANLABS-2016M1023674

PATIENT

DRUGS (3)
  1. CYCLOPHOSPHAMIDE. [Suspect]
     Active Substance: CYCLOPHOSPHAMIDE
     Indication: PRIMITIVE NEUROECTODERMAL TUMOUR METASTATIC
     Dosage: 1000MG/M2 ON CYCLE DAY 3; CYCLES REPEATED EVERY 3 WEEKS
     Route: 042
  2. CISPLATIN. [Suspect]
     Active Substance: CISPLATIN
     Indication: PRIMITIVE NEUROECTODERMAL TUMOUR METASTATIC
     Dosage: 25MG/M2 ON CYCLE DAYS 1, 2, AND 3; CYCLES REPEATED EVERY 3 WEEKS
     Route: 042
  3. ETOPOSIDE. [Suspect]
     Active Substance: ETOPOSIDE
     Indication: PRIMITIVE NEUROECTODERMAL TUMOUR METASTATIC
     Dosage: 60MG/M2 ON CYCLE DAYS 1, 2, AND 3; CYCLES REPEATED EVERY 3 WEEKS
     Route: 042

REACTIONS (2)
  - Febrile neutropenia [Unknown]
  - Acute kidney injury [Unknown]
